FAERS Safety Report 9854107 (Version 2)
Quarter: 2014Q1

REPORT INFORMATION
  Report Type: Spontaneous
  Country: US (occurrence: US)
  Receive Date: 20140129
  Receipt Date: 20140129
  Transmission Date: 20141002
  Serious: Yes (Other)
  Sender: FDA-Public Use
  Company Number: US-GE HEALTHCARE MEDICAL DIAGNOSTICS-OSCN-PR-0804S-0240

PATIENT
  Age: 77 Year
  Sex: Male

DRUGS (24)
  1. GADOLINIUM (UNSPECIFIED) [Suspect]
     Indication: PRODUCT USED FOR UNKNOWN INDICATION
     Dates: start: 20041223, end: 20041223
  2. MAGNEVIST [Suspect]
     Indication: INTRASPINAL ABSCESS
     Dates: start: 20060216, end: 20060216
  3. MAGNEVIST [Suspect]
     Indication: AORTIC STENOSIS
     Dates: start: 20060519, end: 20060519
  4. MAGNEVIST [Suspect]
     Indication: GAIT DISTURBANCE
     Dates: start: 20060822, end: 20060822
  5. MAGNEVIST [Suspect]
     Dates: start: 20060824, end: 20060824
  6. OPTIMARK [Suspect]
     Indication: PRODUCT USED FOR UNKNOWN INDICATION
  7. MULTIHANCE [Suspect]
     Indication: PRODUCT USED FOR UNKNOWN INDICATION
  8. PROHANCE [Suspect]
     Indication: PRODUCT USED FOR UNKNOWN INDICATION
  9. EPOGEN [Concomitant]
  10. LASIX [Concomitant]
  11. HYTRIN [Concomitant]
  12. PLAVIX [Concomitant]
  13. LISINOPRIL [Concomitant]
  14. METOPROLOL [Concomitant]
  15. LOVASTATIN [Concomitant]
  16. PROCRIT [Concomitant]
  17. DILTIAZEM XR [Concomitant]
  18. INSULIN [Concomitant]
  19. PHOSLO [Concomitant]
  20. NIFEDIPINE [Concomitant]
  21. FERROUS SULFATE [Concomitant]
  22. COUMADIN [Concomitant]
  23. RENAGEL [Concomitant]
  24. PREDNISONE [Concomitant]

REACTIONS (1)
  - Nephrogenic systemic fibrosis [Not Recovered/Not Resolved]
